FAERS Safety Report 10263113 (Version 2)
Quarter: 2014Q2

REPORT INFORMATION
  Report Type: Spontaneous
  Country: FR (occurrence: FR)
  Receive Date: 20140626
  Receipt Date: 20140626
  Transmission Date: 20141212
  Serious: Yes (Death, Hospitalization)
  Sender: FDA-Public Use
  Company Number: FR-SA-A02200900821

PATIENT
  Age: 69 Year
  Sex: Female

DRUGS (9)
  1. CEFTRIAXONE DAKOTA PHARM [Suspect]
     Indication: BRONCHITIS
     Dosage: UNIT DOSE: 1 G
     Route: 042
     Dates: start: 20090106, end: 20090115
  2. PLAQUENIL [Suspect]
     Indication: PRODUCT USED FOR UNKNOWN INDICATION
     Dosage: UNIT DOSE: 200 MG
     Route: 048
     Dates: start: 200812, end: 20090119
  3. ROVAMYCINE [Suspect]
     Indication: BRONCHITIS
     Dosage: UNIT DOSE: 3 MIU (1 DF, 2 DAYS) DOSE:3 MILLIUNIT(S)
     Route: 048
     Dates: start: 20090106, end: 20090115
  4. RENAGEL [Suspect]
     Indication: PRODUCT USED FOR UNKNOWN INDICATION
     Dosage: UNIT DOSE: 800 MG
     Route: 048
     Dates: start: 20090111, end: 20090121
  5. BENEMIDE [Suspect]
     Indication: PRODUCT USED FOR UNKNOWN INDICATION
     Dosage: UNIT DOSE: 500 MG
     Route: 048
     Dates: start: 20081206, end: 20090119
  6. COLCHICINE OPOCALCIUM [Suspect]
     Indication: PRODUCT USED FOR UNKNOWN INDICATION
     Dosage: UNIT DOSE: 1 MG
     Route: 048
     Dates: start: 200706, end: 20090122
  7. MEDIATOR [Suspect]
     Indication: PRODUCT USED FOR UNKNOWN INDICATION
     Dosage: UNIT DOSE: 150 MG
     Route: 048
     Dates: end: 20090119
  8. TAHOR [Suspect]
     Indication: PRODUCT USED FOR UNKNOWN INDICATION
     Dosage: UNIT DOSE: 40 MG
     Route: 048
     Dates: end: 20090119
  9. AUGMENTIN [Concomitant]
     Indication: BRONCHITIS
     Route: 048
     Dates: end: 20090105

REACTIONS (3)
  - Rash maculo-papular [Fatal]
  - Pruritus [Fatal]
  - Rash pustular [Fatal]
